FAERS Safety Report 7154355-8 (Version None)
Quarter: 2010Q4

REPORT INFORMATION
  Report Type: 
  Country: None (occurrence: None)
  Receive Date: 20101213
  Receipt Date: 20101203
  Transmission Date: 20110411
  Serious: Yes (Other)
  Sender: FDA-Public Use
  Company Number: US-PFIZER INC-2010164122

PATIENT
  Sex: Female
  Weight: 86 kg

DRUGS (9)
  1. NEURONTIN [Suspect]
     Indication: PAIN
     Dosage: UNK
     Dates: start: 20091201, end: 20101201
  2. NEURONTIN [Suspect]
     Indication: NERVE INJURY
  3. LYRICA [Suspect]
     Indication: PAIN
     Dosage: 150 MG, 2X/DAY
     Route: 048
     Dates: start: 20101203
  4. LYRICA [Suspect]
     Indication: NERVE INJURY
  5. DETROL LA [Concomitant]
     Dosage: UNK
  6. CELEBREX [Concomitant]
     Indication: ARTHRITIS
     Dosage: UNK
  7. ALLEGRA [Concomitant]
     Indication: PRURITUS GENERALISED
     Dosage: UNK
  8. TRICOR [Concomitant]
     Indication: BLOOD TRIGLYCERIDES INCREASED
     Dosage: UNK
  9. VITAMIN D [Concomitant]
     Dosage: UNK

REACTIONS (8)
  - BACK PAIN [None]
  - DISTURBANCE IN ATTENTION [None]
  - DRUG INEFFECTIVE [None]
  - FEELING ABNORMAL [None]
  - MEMORY IMPAIRMENT [None]
  - PAIN [None]
  - QUALITY OF LIFE DECREASED [None]
  - SOMNOLENCE [None]
